FAERS Safety Report 4693041-0 (Version None)
Quarter: 2005Q2

REPORT INFORMATION
  Report Type: 
  Country: None (occurrence: None)
  Receive Date: 20050617
  Receipt Date: 20030717
  Transmission Date: 20051028
  Serious: Yes (Other)
  Sender: FDA-Public Use
  Company Number: PHEH2003US06176

PATIENT
  Age: 59 Year
  Sex: Female

DRUGS (4)
  1. CALCIUM GLUCONATE [Concomitant]
  2. LOTREL [Suspect]
     Indication: HYPERTENSION
     Dosage: UNK, UNK
     Route: 048
     Dates: start: 20000101, end: 20030101
  3. HYDROCHLOROTHIAZIDE [Concomitant]
     Dosage: 25 MG, QD
  4. ASPIRIN [Concomitant]
     Dosage: 81 MG, UNK

REACTIONS (8)
  - DRUG TOXICITY [None]
  - MUSCLE SPASMS [None]
  - OEDEMA [None]
  - OEDEMA PERIPHERAL [None]
  - PARAESTHESIA [None]
  - PERFORMANCE STATUS DECREASED [None]
  - SOMNOLENCE [None]
  - SWELLING [None]
